FAERS Safety Report 8294547 (Version 2)
Quarter: 2013Q2

REPORT INFORMATION
  Report Type: Spontaneous
  Country: US (occurrence: None)
  Receive Date: 20111122
  Receipt Date: 20120703
  Transmission Date: 20140414
  Serious: No
  Sender: FDA-Public Use
  Company Number: PHHY2011US64740

PATIENT
  Age: 53 Year
  Sex: Female
  Weight: 70.3 kg

DRUGS (1)
  1. GILENYA [Suspect]
     Indication: MULTIPLE SCLEROSIS RELAPSE
     Dosage: 0.5 MG, QD, ORAL
     Route: 048
     Dates: start: 20110425

REACTIONS (2)
  - VISUAL IMPAIRMENT [None]
  - Diarrhoea [None]
